FAERS Safety Report 4474171-5 (Version None)
Quarter: 2004Q4

REPORT INFORMATION
  Report Type: 
  Country: None (occurrence: None)
  Receive Date: 20041014
  Receipt Date: 20040506
  Transmission Date: 20050328
  Serious: Yes (Hospitalization)
  Sender: FDA-Public Use
  Company Number: US-BRISTOL-MYERS SQUIBB COMPANY-12587317

PATIENT
  Age: 45 Year
  Sex: Male

DRUGS (8)
  1. VIDEX [Suspect]
     Indication: HIV INFECTION
     Route: 048
     Dates: start: 20010522, end: 20010620
  2. KALETRA [Suspect]
     Dosage: 400/100 MG
     Route: 048
     Dates: end: 20021201
  3. ZERIT [Concomitant]
  4. PAXIL [Concomitant]
  5. NEURONTIN [Concomitant]
  6. ZANTAC [Concomitant]
  7. ENALAPRIL MALEATE [Concomitant]
  8. GLUCOTROL [Concomitant]

REACTIONS (1)
  - PANCREATITIS [None]
